FAERS Safety Report 8167843 (Version 7)
Quarter: 2012Q4

REPORT INFORMATION
  Report Type: 
  Country: US (occurrence: US)
  Receive Date: 20111004
  Receipt Date: 20121023
  Transmission Date: 20130627
  Serious: Yes (Hospitalization, Disabling)
  Sender: FDA-Public Use
  Company Number: US-BAYER-2011-090605

PATIENT
  Age: 44 Year
  Sex: Female
  Weight: 113.38 kg

DRUGS (31)
  1. YASMIN [Suspect]
     Indication: CONTRACEPTION
     Dosage: UNK
     Dates: start: 200505, end: 20090915
  2. OCELLA [Suspect]
     Dosage: UNK
     Dates: start: 2005, end: 20090915
  3. OCELLA [Suspect]
     Dosage: UNK
     Dates: start: 200908, end: 20090915
  4. PREDNISOLONE [Concomitant]
     Indication: ANTIINFLAMMATORY THERAPY
     Dosage: UNK
     Dates: start: 20090801, end: 20100131
  5. CYTOXAN [Concomitant]
  6. CELEXA [Concomitant]
     Indication: DEPRESSION
     Dosage: UNK
     Dates: start: 200905, end: 201001
  7. OMEPRAZOLE [Concomitant]
  8. PRILOSEC [Concomitant]
  9. MEVACOR [Concomitant]
  10. CALCIUM VIT D [Concomitant]
  11. IBUPROFEN [Concomitant]
  12. CRESTOR [Concomitant]
     Indication: HYPERLIPIDEMIA
     Dosage: UNK
     Dates: start: 2008, end: 2009
  13. CYMBALTA [Concomitant]
  14. CLONAZEPAM [Concomitant]
     Indication: INSOMNIA
     Dosage: UNK
     Dates: start: 2000
  15. CLONAZEPAM [Concomitant]
     Indication: ANXIETY
  16. FOSAMAX [Concomitant]
  17. Z-PAK [Concomitant]
     Dosage: UNK
     Dates: start: 2008, end: 2009
  18. LIPITOR [Concomitant]
     Dosage: UNK
     Dates: start: 200011, end: 200810
  19. LIPITOR [Concomitant]
     Dosage: UNK
     Dates: start: 200912
  20. MULTIVITAMIN [Concomitant]
  21. ESTER C [Concomitant]
  22. BACTRIM DS [Concomitant]
     Dosage: 1 tab every Mon, Wed, and Fri
  23. OXYGEN [Concomitant]
  24. CELLCEPT [Concomitant]
     Dosage: 500 mg, UNK
     Dates: start: 20090901
  25. NORVASC [Concomitant]
     Dosage: 2.5 mg, UNK
     Dates: start: 20090901
  26. REMERON [Concomitant]
     Dosage: 15 mg, UNK
     Dates: start: 20090901
  27. RESTASIS [Concomitant]
     Dosage: 0.05 %, UNK
     Dates: start: 20090901
  28. FOLIC ACID [Concomitant]
     Dosage: 1 mg, UNK
     Dates: start: 20090901
  29. BIAXIN [Concomitant]
     Dosage: UNK
     Dates: start: 2008, end: 2009
  30. VITAMIN C [Concomitant]
     Dosage: UNK
     Dates: start: 200912
  31. LOVASTATIN [Concomitant]
     Dosage: UNK
     Dates: start: 200810, end: 200912

REACTIONS (13)
  - Pulmonary embolism [Recovered/Resolved with Sequelae]
  - Deep vein thrombosis [None]
  - Injury [Recovered/Resolved with Sequelae]
  - Pain in extremity [None]
  - General physical health deterioration [None]
  - Emotional distress [None]
  - Quality of life decreased [None]
  - Anxiety [None]
  - Oedema peripheral [None]
  - Dyspnoea [Recovered/Resolved with Sequelae]
  - Fatigue [Recovered/Resolved with Sequelae]
  - Depression [None]
  - Pain [Recovered/Resolved with Sequelae]
